FAERS Safety Report 9537727 (Version 1)
Quarter: 2013Q3

REPORT INFORMATION
  Report Type: Spontaneous
  Country: US (occurrence: US)
  Receive Date: 20130919
  Receipt Date: 20130919
  Transmission Date: 20140515
  Serious: No
  Sender: FDA-Public Use
  Company Number: US-009507513-1309USA004782

PATIENT
  Sex: Female

DRUGS (1)
  1. JANUVIA [Suspect]

REACTIONS (2)
  - Lipase increased [Unknown]
  - Nausea [Unknown]
